FAERS Safety Report 5602581-9 (Version None)
Quarter: 2008Q1

REPORT INFORMATION
  Report Type: 
  Country: None (occurrence: None)
  Receive Date: 20080125
  Receipt Date: 20080121
  Transmission Date: 20080703
  Serious: Yes (Hospitalization)
  Sender: FDA-Public Use
  Company Number: DE-WYE-G00919208

PATIENT
  Age: 77 Year
  Sex: Female
  Weight: 70 kg

DRUGS (7)
  1. TYGACIL [Suspect]
     Indication: ABDOMINAL INFECTION
     Dosage: 100 MG ONE TIME PER DAY ON 17-SEP-07
     Route: 042
     Dates: start: 20070917
  2. ISOPTIN [Concomitant]
     Dosage: DOSE AND FREQUENCY UNKNOWN
     Route: 065
  3. ASCORBIC ACID [Concomitant]
     Dosage: DOSE AND FREQUENCY UNKNOWN
     Route: 065
  4. TOREM [Concomitant]
     Dosage: DOSE AND FREQUENCY UNKNOWN
     Route: 065
  5. MOVICOL [Concomitant]
     Dosage: DOSE AND FREQUENCY UNKNOWN
     Route: 048
  6. CLEXANE [Concomitant]
     Dosage: DOSE AND FREQUENCY UNKNOWN
     Route: 065
  7. RANITIDINE [Concomitant]
     Dosage: DOSE AND FREQUENCY UNKNOWN
     Route: 048

REACTIONS (1)
  - SEPSIS [None]
